FAERS Safety Report 5532305-5 (Version None)
Quarter: 2007Q4

REPORT INFORMATION
  Report Type: 
  Country: None (occurrence: None)
  Receive Date: 20071203
  Receipt Date: 20071128
  Transmission Date: 20080405
  Serious: Yes (Other)
  Sender: FDA-Public Use
  Company Number: US-GENENTECH-247322

PATIENT
  Sex: Female
  Weight: 62.132 kg

DRUGS (4)
  1. XOLAIR [Suspect]
     Indication: BRONCHOSPASM
     Dosage: UNK, UNKNOWN
     Route: 065
  2. ADVAIR DISKUS 100/50 [Concomitant]
     Indication: DRUG USE FOR UNKNOWN INDICATION
     Dosage: UNK, UNK
     Dates: start: 20070907
  3. ALBUTEROL [Concomitant]
     Indication: DRUG USE FOR UNKNOWN INDICATION
     Dosage: 0.083 %, UNK
     Dates: start: 20070907
  4. SINGULAIR [Concomitant]
     Indication: DRUG USE FOR UNKNOWN INDICATION
     Dosage: 10 MG, UNK
     Dates: start: 20070907

REACTIONS (3)
  - ANAPHYLACTIC REACTION [None]
  - CHEST DISCOMFORT [None]
  - THROAT IRRITATION [None]
